FAERS Safety Report 12528100 (Version 1)
Quarter: 2016Q3

REPORT INFORMATION
  Report Type: Spontaneous
  Country: US (occurrence: US)
  Receive Date: 20160705
  Receipt Date: 20160705
  Transmission Date: 20161109
  Serious: No
  Sender: FDA-Public Use
  Company Number: US-CARDINAL HEALTH 418, INC.-1054661

PATIENT
  Age: 81 Year
  Sex: Female

DRUGS (1)
  1. SODIUM IODIDE I 123 [Suspect]
     Active Substance: SODIUM IODIDE I-123
     Indication: SCAN THYROID GLAND
     Route: 048
     Dates: start: 20151006, end: 20151006

REACTIONS (4)
  - Tremor [Recovered/Resolved]
  - Dizziness [Recovered/Resolved]
  - Malaise [Recovered/Resolved]
  - Crying [None]

NARRATIVE: CASE EVENT DATE: 20151006
